FAERS Safety Report 12195192 (Version 1)
Quarter: 2016Q1

REPORT INFORMATION
  Report Type: Spontaneous
  Country: JP (occurrence: JP)
  Receive Date: 20160321
  Receipt Date: 20160321
  Transmission Date: 20160526
  Serious: Yes (Hospitalization, Other)
  Sender: FDA-Public Use
  Company Number: JP-PFIZER INC-2016067330

PATIENT
  Age: 30 Year
  Sex: Male

DRUGS (3)
  1. LYRICA [Suspect]
     Active Substance: PREGABALIN
     Indication: SPINAL OSTEOARTHRITIS
     Dosage: 25 MG, 1X/DAY
     Route: 048
     Dates: start: 201510
  2. LYRICA [Suspect]
     Active Substance: PREGABALIN
     Dosage: 75 MG, 2X/DAY
     Route: 048
     Dates: start: 20160119, end: 20160202
  3. CELECOX [Concomitant]
     Active Substance: CELECOXIB
     Indication: SPINAL OSTEOARTHRITIS
     Dosage: 100 MG, 2X/DAY
     Route: 048
     Dates: start: 20160129, end: 20160204

REACTIONS (3)
  - Intervertebral disc protrusion [Unknown]
  - Rhabdomyolysis [Recovered/Resolved]
  - Product use issue [Recovered/Resolved]

NARRATIVE: CASE EVENT DATE: 201510
